FAERS Safety Report 24594609 (Version 1)
Quarter: 2024Q4

REPORT INFORMATION
  Report Type: Spontaneous
  Country: US (occurrence: None)
  Receive Date: 20241108
  Receipt Date: 20241108
  Transmission Date: 20250114
  Serious: No
  Sender: Public
  Company Number: None

PATIENT
  Age: 55 Year
  Sex: Female
  Weight: 54.43 kg

DRUGS (2)
  1. LEVOTHYROXINE [Suspect]
     Active Substance: LEVOTHYROXINE
     Indication: Primary hypothyroidism
     Dosage: 90 MG DAILY ORAL
     Route: 048
  2. LIOTHYRONINE [Suspect]
     Active Substance: LIOTHYRONINE
     Dates: start: 20240830

REACTIONS (1)
  - Malaise [None]
